FAERS Safety Report 10376816 (Version 1)
Quarter: 2014Q1

REPORT INFORMATION
  Report Type: Spontaneous
  Country: US (occurrence: None)
  Receive Date: 20140306
  Receipt Date: 20140306
  Transmission Date: 20141002
  Serious: Yes (Other)
  Sender: FDA-Public Use
  Company Number: 163-21880-13122173

PATIENT
  Age: 80 Year
  Sex: Female
  Weight: 80.29 kg

DRUGS (9)
  1. REVLIMID (LENALIDOMIDE) (5 MILLIGRAM, CAPSULES) [Suspect]
     Indication: PLASMA CELL MYELOMA
     Route: 048
     Dates: start: 201201
  2. NORCO (VICODIN) [Concomitant]
  3. ZOFRAN  (ONDANSETRON HYDROCHLORIDE) [Concomitant]
  4. SYNTHROID (LEVOTHYROXINE SODIUM) [Concomitant]
  5. CORGARD (NADOLOL) [Concomitant]
  6. MEVACOR (LOVASTATIN) [Concomitant]
  7. ASA (ACETYLSALICYLIC ACID) [Concomitant]
  8. LOSARTAN [Concomitant]
  9. TRAZODONE [Concomitant]

REACTIONS (2)
  - Full blood count decreased [None]
  - Rash pruritic [None]
